FAERS Safety Report 4401035-5 (Version None)
Quarter: 2004Q3

REPORT INFORMATION
  Report Type: 
  Country: None (occurrence: None)
  Receive Date: 20040907
  Receipt Date: 20031001
  Transmission Date: 20050211
  Serious: Yes (Hospitalization)
  Sender: FDA-Public Use
  Company Number: US-BRISTOL-MYERS SQUIBB COMPANY-12398566

PATIENT
  Age: 64 Year
  Sex: Female
  Weight: 113 kg

DRUGS (5)
  1. COUMADIN [Suspect]
  2. NEXIUM [Concomitant]
  3. MULTIVITAMIN [Concomitant]
  4. MINERAL TAB [Concomitant]
  5. IRON (FERROUS SULFATE) [Concomitant]

REACTIONS (2)
  - CONTUSION [None]
  - GASTROINTESTINAL HAEMORRHAGE [None]
